FAERS Safety Report 18493871 (Version 6)
Quarter: 2023Q1

REPORT INFORMATION
  Report Type: Spontaneous
  Country: IT (occurrence: IT)
  Receive Date: 20201111
  Receipt Date: 20230219
  Transmission Date: 20230418
  Serious: Yes (Hospitalization, Other)
  Sender: FDA-Public Use
  Company Number: IT-ROCHE-2026263

PATIENT
  Sex: Female
  Weight: 77 kg

DRUGS (31)
  1. DOCETAXEL [Suspect]
     Active Substance: DOCETAXEL
     Indication: Breast cancer metastatic
     Dosage: 75 MILLIGRAM/SQ. METER (3 WEEK) (ON 06/SEP/2017, SHE RECEIVED MOST RECENT DOSE OF DOCETAXEL)
     Route: 042
     Dates: start: 20170726, end: 20170906
  2. DOCETAXEL [Suspect]
     Active Substance: DOCETAXEL
     Dosage: 100 MILLIGRAM
     Route: 042
     Dates: start: 20170906, end: 20170927
  3. DOCETAXEL [Suspect]
     Active Substance: DOCETAXEL
     Dosage: 65 MILLIGRAM/SQ. METER
     Route: 042
     Dates: start: 20170726, end: 20170906
  4. LETROZOLE [Suspect]
     Active Substance: LETROZOLE
     Indication: Breast cancer metastatic
     Dosage: 2.5 MILLIGRAM, ONCE A DAY
     Route: 048
     Dates: start: 20180209
  5. PERTUZUMAB [Suspect]
     Active Substance: PERTUZUMAB
     Indication: Breast cancer metastatic
     Dosage: 840 MILLIGRAM (3 WEEK) (MOST RECENT DOSE PRIOR TO THE EVENT: 05/OCT/2018)
     Route: 042
     Dates: start: 20170818, end: 20170818
  6. PERTUZUMAB [Suspect]
     Active Substance: PERTUZUMAB
     Dosage: 420 MILLIGRAM, EVERY OTHER DAY
     Route: 042
     Dates: start: 20170906, end: 20171018
  7. PERTUZUMAB [Suspect]
     Active Substance: PERTUZUMAB
     Dosage: 840 MILLIGRAM, EVERY OTHER DAY
     Route: 042
     Dates: start: 20171206, end: 20171206
  8. PERTUZUMAB [Suspect]
     Active Substance: PERTUZUMAB
     Dosage: 420 MILLIGRAM, EVERY OTHER DAY
     Route: 042
     Dates: start: 20180105, end: 20210503
  9. TRASTUZUMAB [Suspect]
     Active Substance: TRASTUZUMAB
     Indication: Breast cancer metastatic
     Dosage: 600 MILLIGRAM (3 WEEK)
     Route: 042
     Dates: start: 20170726, end: 20170726
  10. TRASTUZUMAB [Suspect]
     Active Substance: TRASTUZUMAB
     Dosage: 6 MILLIGRAM/KILOGRAM, EVERY OTHER DAY( 3 WEEK)
     Route: 042
     Dates: start: 20170818, end: 20170818
  11. TRASTUZUMAB [Suspect]
     Active Substance: TRASTUZUMAB
     Dosage: 560 MILLIGRAM(3 WEEK)
     Route: 042
     Dates: start: 20171206, end: 20171206
  12. TRASTUZUMAB [Suspect]
     Active Substance: TRASTUZUMAB
     Dosage: 6 MILLIGRAM/KILOGRAM, EVERY OTHER DAY( 3 WEEK)
     Route: 042
     Dates: start: 20180105, end: 20210503
  13. CETIRIZINE [Concomitant]
     Active Substance: CETIRIZINE HYDROCHLORIDE
     Indication: Pruritus
     Dosage: UNK (ONGOING = CHECKED)
     Route: 065
     Dates: start: 20181002, end: 20181215
  14. CHLORPHENIRAMINE [Concomitant]
     Active Substance: CHLORPHENIRAMINE
     Indication: Product used for unknown indication
     Dosage: UNK (ONGOING = CHECKED)
     Route: 065
     Dates: start: 20170726
  15. VALPROATE SODIUM [Concomitant]
     Active Substance: VALPROATE SODIUM
     Indication: Product used for unknown indication
     Dosage: UNK (ONGOING = CHECKED)
     Route: 065
     Dates: start: 20181108, end: 20190127
  16. VALPROATE SODIUM [Concomitant]
     Active Substance: VALPROATE SODIUM
     Dosage: (ONGOING = CHECKED)
     Route: 065
     Dates: start: 20190128
  17. DELORAZEPAM [Concomitant]
     Active Substance: DELORAZEPAM
     Indication: Major depression
     Dosage: UNK
     Route: 065
     Dates: start: 20131218, end: 20171113
  18. DELORAZEPAM [Concomitant]
     Active Substance: DELORAZEPAM
     Dosage: UNK
     Route: 065
     Dates: start: 20171113
  19. LEVOTHYROXINE SODIUM [Concomitant]
     Active Substance: LEVOTHYROXINE SODIUM
     Indication: Product used for unknown indication
     Dosage: UNK
     Route: 065
  20. KCL [Concomitant]
     Active Substance: POTASSIUM CHLORIDE
     Indication: Product used for unknown indication
     Dosage: UNK (ONGOING = CHECKED)
     Route: 065
     Dates: start: 20180427
  21. KCL [Concomitant]
     Active Substance: POTASSIUM CHLORIDE
     Dosage: UNK (ONGOING = CHECKED)
     Route: 065
     Dates: start: 20210731
  22. LOPERAMIDE [Concomitant]
     Active Substance: LOPERAMIDE
     Indication: Diarrhoea
     Dosage: UNK (ONGOING = CHECKED)
     Route: 065
     Dates: start: 20170906
  23. LOPERAMIDE [Concomitant]
     Active Substance: LOPERAMIDE
     Dosage: UNK (ONGOING = CHECKED)
     Route: 065
     Dates: start: 20180126
  24. LORAZEPAM [Concomitant]
     Active Substance: LORAZEPAM
     Indication: Major depression
     Dosage: UNK
     Route: 065
     Dates: start: 20190110
  25. TELMISARTAN [Concomitant]
     Active Substance: TELMISARTAN
     Indication: Product used for unknown indication
     Dosage: UNK
     Route: 065
     Dates: start: 20100310
  26. UREA [Concomitant]
     Active Substance: UREA
     Indication: Pruritus
     Dosage: UNK (ONGOING = NOT CHECKED)
     Route: 065
     Dates: start: 20180926
  27. SOLIFENACINA [Concomitant]
     Indication: Urinary incontinence
     Dosage: UNK
     Route: 065
     Dates: start: 20200731
  28. POTASSIUM ASPARTATE [Concomitant]
     Active Substance: POTASSIUM ASPARTATE
     Indication: Hypokalaemia
     Dosage: UNK
     Route: 065
     Dates: start: 20200130
  29. MAGNESIUM SULFATE [Concomitant]
     Active Substance: MAGNESIUM SULFATE
     Indication: Hypomagnesaemia
     Dosage: UNK
     Route: 065
     Dates: start: 20180427
  30. MAGNESIUM SULFATE [Concomitant]
     Active Substance: MAGNESIUM SULFATE
     Dosage: UNK
     Route: 065
     Dates: start: 20200403, end: 20210503
  31. MAGNESIUM SULFATE [Concomitant]
     Active Substance: MAGNESIUM SULFATE
     Dosage: UNK
     Route: 065
     Dates: start: 20210322

REACTIONS (1)
  - Major depression [Recovered/Resolved]

NARRATIVE: CASE EVENT DATE: 20171113
